FAERS Safety Report 5627879-X (Version None)
Quarter: 2008Q1

REPORT INFORMATION
  Report Type: 
  Country: None (occurrence: None)
  Receive Date: 20080215
  Receipt Date: 20080208
  Transmission Date: 20080703
  Serious: Yes (Hospitalization)
  Sender: FDA-Public Use
  Company Number: FR-MERCK-0802FRA00042

PATIENT
  Age: 86 Year
  Sex: Male

DRUGS (10)
  1. ZOCOR [Suspect]
     Indication: DYSLIPIDAEMIA
     Route: 048
     Dates: start: 20080104
  2. FLUINDIONE [Suspect]
     Indication: ATRIAL FIBRILLATION
     Route: 048
     Dates: end: 20080107
  3. FLUINDIONE [Suspect]
     Route: 048
     Dates: start: 20080115, end: 20080120
  4. FLUINDIONE [Suspect]
     Route: 048
     Dates: start: 20080121
  5. ASPIRIN [Suspect]
     Indication: ISCHAEMIC CARDIOMYOPATHY
     Route: 048
     Dates: end: 20080114
  6. COLCHICINE [Suspect]
     Route: 048
     Dates: end: 20080107
  7. BISOPROLOL [Concomitant]
     Indication: ISCHAEMIC CARDIOMYOPATHY
     Route: 048
  8. LERCANIDIPINE [Concomitant]
     Route: 048
  9. RAMIPRIL [Concomitant]
     Indication: CARDIAC FAILURE CONGESTIVE
     Route: 048
  10. FUROSEMIDE [Concomitant]
     Indication: CARDIAC FAILURE CONGESTIVE
     Route: 048

REACTIONS (2)
  - ABDOMINAL WALL HAEMATOMA [None]
  - DRUG INTERACTION [None]
